FAERS Safety Report 9428476 (Version 2)
Quarter: 2013Q3

REPORT INFORMATION
  Report Type: Spontaneous
  Country: DE (occurrence: DE)
  Receive Date: 20130730
  Receipt Date: 20130809
  Transmission Date: 20140515
  Serious: Yes (Congenital Anomaly)
  Sender: FDA-Public Use
  Company Number: DE-SANOFI-AVENTIS-2013SA074434

PATIENT
  Sex: Male

DRUGS (6)
  1. CLOPIDOGREL BISULFATE [Suspect]
     Indication: MATERNAL EXPOSURE TIMING UNSPECIFIED
     Dosage: 0-8 WEEKS
     Route: 064
  2. RAMIPRIL [Suspect]
     Indication: MATERNAL EXPOSURE TIMING UNSPECIFIED
     Dosage: 0-8 WEEKS
     Route: 064
  3. PRAVASTATIN [Suspect]
     Indication: MATERNAL EXPOSURE TIMING UNSPECIFIED
     Dosage: 0-8 WEEKS
     Route: 064
  4. METOPROLOL [Suspect]
     Indication: MATERNAL EXPOSURE TIMING UNSPECIFIED
     Dosage: VERMUTLICH BIS ZUR ENTBINDUNG
     Route: 064
  5. ASA [Suspect]
     Indication: MATERNAL EXPOSURE TIMING UNSPECIFIED
     Route: 064
  6. NEPRESOL [Concomitant]
     Indication: MATERNAL EXPOSURE TIMING UNSPECIFIED
     Dosage: PROBABLY UNTIL DELIVERY
     Route: 064

REACTIONS (10)
  - Congenital aortic valve stenosis [Recovered/Resolved with Sequelae]
  - Foetal exposure during pregnancy [Unknown]
  - Congenital aortic stenosis [Unknown]
  - Congenital heart valve disorder [Recovered/Resolved with Sequelae]
  - Congenital heart valve disorder [Unknown]
  - Aorta hypoplasia [Recovered/Resolved with Sequelae]
  - Coarctation of the aorta [Unknown]
  - Mitral valve hypoplasia [Recovered/Resolved with Sequelae]
  - Ventricular septal defect [Unknown]
  - Atrial septal defect [Recovered/Resolved with Sequelae]
